FAERS Safety Report 8954955 (Version 1)
Quarter: 2012Q4

REPORT INFORMATION
  Report Type: Spontaneous
  Country: US (occurrence: None)
  Receive Date: 20121205
  Receipt Date: 20121205
  Transmission Date: 20130627
  Serious: Yes (Hospitalization)
  Sender: FDA-Public Use
  Company Number: None

PATIENT
  Age: 68 Year
  Sex: Male

DRUGS (1)
  1. ADCIRCA [Suspect]
     Indication: PRIMARY PULMONARY HYPERTENSION
     Route: 048
     Dates: start: 20120110

REACTIONS (1)
  - Thrombosis [None]
